FAERS Safety Report 4999917-9 (Version None)
Quarter: 2006Q2

REPORT INFORMATION
  Report Type: 
  Country: None (occurrence: None)
  Receive Date: 20060509
  Receipt Date: 20060426
  Transmission Date: 20061013
  Serious: Yes (Life-Threatening)
  Sender: FDA-Public Use
  Company Number: S06-FRA-01306-01

PATIENT
  Age: 84 Year
  Sex: Male

DRUGS (4)
  1. CITALOPRAM HYDROBROMIDE [Suspect]
     Indication: BIPOLAR I DISORDER
     Dosage: 1 UNITS QD PO
     Route: 048
     Dates: start: 20051208, end: 20060111
  2. KARDEGIC (ACETYLSALICYLATE LYSINE) [Concomitant]
  3. RAMIPRIL [Concomitant]
  4. LAMALINE [Concomitant]

REACTIONS (1)
  - AGRANULOCYTOSIS [None]
